FAERS Safety Report 5955692-2 (Version None)
Quarter: 2008Q4

REPORT INFORMATION
  Report Type: 
  Country: None (occurrence: None)
  Receive Date: 20081117
  Receipt Date: 20081107
  Transmission Date: 20090506
  Serious: Yes (Other)
  Sender: FDA-Public Use
  Company Number: US-PFIZER INC-2008094882

PATIENT
  Sex: Female

DRUGS (1)
  1. CHANTIX [Suspect]
     Dates: start: 20081103

REACTIONS (3)
  - BLOOD GLUCOSE INCREASED [None]
  - GLAUCOMA [None]
  - VISUAL IMPAIRMENT [None]
